FAERS Safety Report 9105539 (Version 2)
Quarter: 2013Q1

REPORT INFORMATION
  Report Type: Report from Study
  Country: ES (occurrence: JP)
  Receive Date: 20130220
  Receipt Date: 20130304
  Transmission Date: 20140127
  Serious: Yes (Hospitalization, Other)
  Sender: FDA-Public Use
  Company Number: JP-FRI-1000042755

PATIENT
  Age: 70 Year
  Sex: Male

DRUGS (3)
  1. ACLIDINIUM BROMIDE [Suspect]
     Indication: CHRONIC OBSTRUCTIVE PULMONARY DISEASE
     Dosage: 800 MCG
     Route: 055
     Dates: start: 20121128, end: 20130219
  2. SULTANOL [Concomitant]
     Route: 055
     Dates: start: 20120711
  3. SALOBEL [Concomitant]
     Dosage: 200 MG
     Route: 048
     Dates: start: 20120907

REACTIONS (1)
  - Prostate cancer [Not Recovered/Not Resolved]
